FAERS Safety Report 5312345-1 (Version None)
Quarter: 2007Q2

REPORT INFORMATION
  Report Type: 
  Country: None (occurrence: None)
  Receive Date: 20070430
  Receipt Date: 20070108
  Transmission Date: 20071010
  Serious: No
  Sender: FDA-Public Use
  Company Number: 2006UW21492

PATIENT
  Age: 77 Year
  Sex: Female
  Weight: 60.8 kg

DRUGS (11)
  1. NEXIUM [Suspect]
     Indication: GASTROOESOPHAGEAL REFLUX DISEASE
     Route: 048
  2. M.V.I. [Concomitant]
  3. IRON [Concomitant]
  4. CALCIUM CHLORIDE [Concomitant]
  5. DYAZIDE [Concomitant]
  6. TOPROL-XL [Concomitant]
     Route: 048
  7. ZOCOR [Concomitant]
  8. PEPCID [Concomitant]
  9. AMBIEN [Concomitant]
  10. LEXAPRO [Concomitant]
  11. ZOLOFT [Concomitant]

REACTIONS (7)
  - DECREASED INTEREST [None]
  - DEPRESSION [None]
  - DISTURBANCE IN SOCIAL BEHAVIOUR [None]
  - FATIGUE [None]
  - ILL-DEFINED DISORDER [None]
  - INSOMNIA [None]
  - SLEEP WALKING [None]
